FAERS Safety Report 5454903-X (Version None)
Quarter: 2007Q3

REPORT INFORMATION
  Report Type: 
  Country: None (occurrence: None)
  Receive Date: 20070917
  Receipt Date: 20061205
  Transmission Date: 20080115
  Serious: Yes (Other)
  Sender: FDA-Public Use
  Company Number: US-ASTRAZENECA-2006UW20545

PATIENT
  Age: 5590 Day
  Sex: Male
  Weight: 57 kg

DRUGS (8)
  1. SEROQUEL [Suspect]
     Indication: BIPOLAR DISORDER
     Route: 048
     Dates: start: 20060915
  2. SEROQUEL [Suspect]
     Indication: ASPERGER'S DISORDER
     Route: 048
     Dates: start: 20060915
  3. SEROQUEL [Suspect]
     Indication: MANIA
     Route: 048
     Dates: start: 20060915
  4. SEROQUEL [Suspect]
     Route: 048
     Dates: start: 20060825, end: 20060915
  5. SEROQUEL [Suspect]
     Route: 048
     Dates: start: 20060825, end: 20060915
  6. SEROQUEL [Suspect]
     Route: 048
     Dates: start: 20060825, end: 20060915
  7. TRILEPTAL [Concomitant]
     Indication: CONVULSION
     Route: 048
  8. LITHIUM [Concomitant]
     Indication: MANIA
     Route: 048
     Dates: start: 20060825

REACTIONS (1)
  - MUSCULAR WEAKNESS [None]
